FAERS Safety Report 10234872 (Version 2)
Quarter: 2014Q2

REPORT INFORMATION
  Report Type: Report from Study
  Country: TR (occurrence: TR)
  Receive Date: 20140613
  Receipt Date: 20140613
  Transmission Date: 20141212
  Serious: Yes (Other)
  Sender: FDA-Public Use
  Company Number: TR-US-EMD SERONO, INC.-7217419

PATIENT
  Age: 27 Year
  Sex: Female

DRUGS (2)
  1. REBIF [Suspect]
     Indication: MULTIPLE SCLEROSIS
     Route: 058
     Dates: start: 201206, end: 20130528
  2. MINOSET [Concomitant]
     Indication: PAIN
     Route: 048
     Dates: start: 201206, end: 20130528

REACTIONS (3)
  - Abortion missed [Recovered/Resolved]
  - Foetal heart rate abnormal [Unknown]
  - Maternal exposure timing unspecified [Recovered/Resolved]
